FAERS Safety Report 10208763 (Version 1)
Quarter: 2014Q2

REPORT INFORMATION
  Report Type: Other
  Country: US (occurrence: US)
  Receive Date: 20140530
  Receipt Date: 20140530
  Transmission Date: 20141212
  Serious: Yes (Hospitalization)
  Sender: FDA-Public Use
  Company Number: US-BRISTOL-MYERS SQUIBB COMPANY-20862611

PATIENT
  Age: 49 Year
  Sex: Male

DRUGS (3)
  1. METFORMIN HCL [Suspect]
     Indication: DIABETES MELLITUS
  2. HALOPERIDOL [Suspect]
     Indication: SCHIZOPHRENIA
  3. TETRAHYDROCANNABINOL [Suspect]

REACTIONS (3)
  - Loss of consciousness [Recovering/Resolving]
  - Toxicity to various agents [Unknown]
  - Acid base balance abnormal [Unknown]
